FAERS Safety Report 9034246 (Version 1)
Quarter: 2013Q1

REPORT INFORMATION
  Report Type: Spontaneous
  Country: US (occurrence: US)
  Receive Date: 20130128
  Receipt Date: 20130128
  Transmission Date: 20140127
  Serious: Yes (Hospitalization)
  Sender: FDA-Public Use
  Company Number: US-AMGEN-US073283

PATIENT
  Age: 59 Year
  Sex: Male

DRUGS (11)
  1. ENBREL [Suspect]
     Indication: RHEUMATOID ARTHRITIS
     Dosage: 25 MG, 2 TIMES/WK
     Route: 058
     Dates: start: 20030901, end: 20040125
  2. LEFLUNOMIDE [Concomitant]
     Dosage: 20 MG, UNK
     Dates: start: 20030501
  3. FLUOXETINE HYDROCHLORIDE [Concomitant]
  4. TERAZOSIN HYDROCHLORIDE [Concomitant]
  5. GLIMEPIRIDE [Concomitant]
  6. LORSARTAN POTASSIUM HYDROCHLORIDE [Concomitant]
  7. EZETIMIBE [Concomitant]
  8. SERTRALINE HYDROCHLORIDE [Concomitant]
  9. ASPIRIN [Concomitant]
     Dosage: 85 MG, UNK
  10. OMEPRAZOLE [Concomitant]
  11. CLONAZEPAM [Concomitant]

REACTIONS (3)
  - Pneumonia [Unknown]
  - Influenza [Unknown]
  - Pleurisy [Unknown]
